FAERS Safety Report 14479549 (Version 3)
Quarter: 2018Q2

REPORT INFORMATION
  Report Type: Report from Study
  Country: DE (occurrence: DE)
  Receive Date: 20180202
  Receipt Date: 20180405
  Transmission Date: 20180711
  Serious: Yes (Hospitalization)
  Sender: FDA-Public Use
  Company Number: PHHY2017DE173408

PATIENT
  Age: 70 Year
  Sex: Male
  Weight: 115 kg

DRUGS (4)
  1. TORASEMIDE [Concomitant]
     Active Substance: TORSEMIDE
     Dosage: 20 MG, QD
     Route: 065
     Dates: start: 20170823
  2. TORASEMIDE [Concomitant]
     Active Substance: TORSEMIDE
     Dosage: 20 MG, BID
     Route: 065
     Dates: start: 201611, end: 20170822
  3. ENTRESTO [Suspect]
     Active Substance: SACUBITRIL\VALSARTAN
     Indication: CARDIAC FAILURE
     Dosage: 50 MG (24 MG SACUBITRIL, 26 MG VALSARTAN), BID
     Route: 048
     Dates: start: 20160905
  4. TORASEMIDE [Concomitant]
     Active Substance: TORSEMIDE
     Indication: PRODUCT USED FOR UNKNOWN INDICATION
     Dosage: 10 MG, BID
     Route: 065
     Dates: start: 201509, end: 201611

REACTIONS (8)
  - Blood urea increased [Unknown]
  - C-reactive protein increased [Not Recovered/Not Resolved]
  - Red blood cell count decreased [Unknown]
  - Haemoglobin decreased [Unknown]
  - Osteoarthritis [Not Recovered/Not Resolved]
  - Device battery issue [Recovered/Resolved]
  - Dehydration [Recovered/Resolved]
  - Cardiorenal syndrome [Not Recovered/Not Resolved]

NARRATIVE: CASE EVENT DATE: 20170428
